FAERS Safety Report 7970452-9 (Version None)
Quarter: 2011Q4

REPORT INFORMATION
  Report Type: 
  Country: None (occurrence: None)
  Receive Date: 20111212
  Receipt Date: 20111201
  Transmission Date: 20120403
  Serious: Yes (Other)
  Sender: FDA-Public Use
  Company Number: PHEH2011US010834

PATIENT
  Sex: Female

DRUGS (1)
  1. EXJADE [Suspect]
     Indication: SICKLE CELL ANAEMIA
     Dosage: 1000 MG, DAILY
     Route: 048
     Dates: start: 20101208

REACTIONS (5)
  - COUGH [None]
  - NASOPHARYNGITIS [None]
  - INFLUENZA [None]
  - PNEUMONIA PRIMARY ATYPICAL [None]
  - PULMONARY CONGESTION [None]
